FAERS Safety Report 5478989-1 (Version None)
Quarter: 2007Q4

REPORT INFORMATION
  Report Type: 
  Country: None (occurrence: None)
  Receive Date: 20071006
  Receipt Date: 20070924
  Transmission Date: 20080405
  Serious: Yes (Hospitalization, Other)
  Sender: FDA-Public Use
  Company Number: US-PFIZER INC-2007079560

PATIENT

DRUGS (1)
  1. LYRICA [Suspect]

REACTIONS (2)
  - APPENDICITIS [None]
  - DRUG INEFFECTIVE [None]
